FAERS Safety Report 23760041 (Version 1)
Quarter: 2024Q2

REPORT INFORMATION
  Report Type: Spontaneous
  Country: IN (occurrence: IN)
  Receive Date: 20240419
  Receipt Date: 20240419
  Transmission Date: 20240716
  Serious: Yes (Other)
  Sender: FDA-Public Use
  Company Number: IN-SANDOZ-SDZ2024IN040473

PATIENT
  Sex: Male

DRUGS (1)
  1. TACROLIMUS [Suspect]
     Active Substance: TACROLIMUS
     Indication: Renal transplant
     Dosage: 2 MG, QD
     Route: 048

REACTIONS (10)
  - Congenital cystic kidney disease [Unknown]
  - Swelling [Unknown]
  - Urine output decreased [Unknown]
  - Somnolence [Unknown]
  - Heart rate increased [Unknown]
  - Epistaxis [Unknown]
  - Hypoglycaemia [Unknown]
  - Weight increased [Unknown]
  - Decreased appetite [Unknown]
  - Hypertension [Unknown]
